FAERS Safety Report 10499274 (Version 1)
Quarter: 2014Q4

REPORT INFORMATION
  Report Type: Spontaneous
  Country: US (occurrence: US)
  Receive Date: 20141006
  Receipt Date: 20141006
  Transmission Date: 20150528
  Serious: No
  Sender: FDA-Public Use
  Company Number: US-AMGEN INC.-USASP2014037296

PATIENT
  Sex: Male

DRUGS (2)
  1. SOMATOSTATIN [Concomitant]
     Active Substance: SOMATOSTATIN
     Dosage: UNK
  2. XGEVA [Suspect]
     Active Substance: DENOSUMAB
     Indication: BONE DISORDER
     Dosage: 120 MG, Q4WK
     Route: 065
     Dates: start: 201405

REACTIONS (1)
  - Bone pain [Unknown]
